FAERS Safety Report 7803062-4 (Version None)
Quarter: 2011Q4

REPORT INFORMATION
  Report Type: 
  Country: None (occurrence: None)
  Receive Date: 20111007
  Receipt Date: 20111006
  Transmission Date: 20120403
  Serious: Yes (Death)
  Sender: FDA-Public Use
  Company Number: BR-B.I. PHARMACEUTICALS,INC./RIDGEFIELD-2011-BR-01062BR

PATIENT
  Sex: Male

DRUGS (4)
  1. MEIDCATION NOT FURHTER SPECIFIED [Concomitant]
  2. SPIRIVA RESPIMAT [Suspect]
     Indication: CHRONIC OBSTRUCTIVE PULMONARY DISEASE
     Dosage: 5 MCG
     Route: 055
     Dates: end: 20110809
  3. SINVASTATINA [Concomitant]
     Indication: BLOOD CHOLESTEROL INCREASED
  4. ASPIRIN [Concomitant]
     Indication: HYPERTENSION

REACTIONS (1)
  - CARDIO-RESPIRATORY ARREST [None]
